FAERS Safety Report 6262457-3 (Version None)
Quarter: 2009Q3

REPORT INFORMATION
  Report Type: 
  Country: None (occurrence: None)
  Receive Date: 20090709
  Receipt Date: 20090625
  Transmission Date: 20100115
  Serious: Yes (Hospitalization)
  Sender: FDA-Public Use
  Company Number: FR-MYLANLABS-2009S1011256

PATIENT
  Age: 66 Year
  Sex: Female

DRUGS (5)
  1. ETOPOSIDE MERCK [Suspect]
     Route: 042
     Dates: start: 20090505, end: 20090506
  2. METHYLPREDNISOLONE [Suspect]
     Dates: start: 20090504, end: 20090508
  3. METHOTREXATE [Suspect]
     Route: 042
     Dates: start: 20090504, end: 20090504
  4. BICNU [Suspect]
     Route: 042
     Dates: start: 20090506, end: 20090506
  5. ONDANSETRON HCL [Concomitant]
     Route: 042
     Dates: start: 20090504

REACTIONS (1)
  - PNEUMOCYSTIS JIROVECI PNEUMONIA [None]
